FAERS Safety Report 5727218-X (Version None)
Quarter: 2008Q2

REPORT INFORMATION
  Report Type: 
  Country: None (occurrence: None)
  Receive Date: 20080501
  Receipt Date: 20070306
  Transmission Date: 20081010
  Serious: Yes (Other)
  Sender: FDA-Public Use
  Company Number: PHEH2007US02790

PATIENT
  Age: 45 Year
  Sex: Female

DRUGS (2)
  1. LOTREL [Suspect]
     Indication: HYPERTENSION
     Dosage: 10/20, QD, ORAL ; 5/10, QD, ORAL
     Route: 048
     Dates: start: 20040101
  2. LOTREL [Suspect]
     Indication: HYPERTENSION
     Dosage: 10/20, QD, ORAL ; 5/10, QD, ORAL
     Route: 048
     Dates: start: 20040101

REACTIONS (1)
  - BLOOD PRESSURE INCREASED [None]
